FAERS Safety Report 5308263-5 (Version None)
Quarter: 2007Q2

REPORT INFORMATION
  Report Type: 
  Country: None (occurrence: None)
  Receive Date: 20070426
  Receipt Date: 20070416
  Transmission Date: 20071010
  Serious: Yes (Hospitalization, Other)
  Sender: FDA-Public Use
  Company Number: US-ELI_LILLY_AND_COMPANY-US200702003959

PATIENT
  Age: 81 Year
  Sex: Female
  Weight: 55.328 kg

DRUGS (13)
  1. FORTEO [Suspect]
     Indication: OSTEOPOROSIS
     Dosage: 20 UG, DAILY (1/D)
     Dates: start: 20050604
  2. POTASSIUM ACETATE [Concomitant]
  3. PREDNISONE TAB [Concomitant]
     Indication: SYSTEMIC LUPUS ERYTHEMATOSUS
     Dosage: 7 MG, DAILY (1/D)
  4. FUROSEMIDE [Concomitant]
     Dosage: 40 MG, DAILY (1/D)
  5. PACERONE [Concomitant]
  6. ULTRACET [Concomitant]
     Indication: PAIN
  7. HYDROXYZINE [Concomitant]
     Indication: PRURITUS
  8. ATENOLOL [Concomitant]
     Dosage: 25 MG, DAILY (1/D)
  9. PROTONIX [Concomitant]
  10. NEURONTIN [Concomitant]
  11. COUMADIN [Concomitant]
  12. HYZAAR [Concomitant]
  13. CORDARONE [Concomitant]

REACTIONS (5)
  - ATRIAL FIBRILLATION [None]
  - DEHYDRATION [None]
  - MITRAL VALVE PROLAPSE [None]
  - PRURITUS [None]
  - RENAL DISORDER [None]
